FAERS Safety Report 8714725 (Version 4)
Quarter: 2012Q4

REPORT INFORMATION
  Report Type: Report from Study
  Country: FR (occurrence: FR)
  Receive Date: 20120809
  Receipt Date: 20121210
  Transmission Date: 20130627
  Serious: Yes (Hospitalization)
  Sender: FDA-Public Use
  Company Number: FR-CELGENEUS-056-50794-12073010

PATIENT
  Age: 81 Year
  Sex: Male
  Weight: 73 kg

DRUGS (4)
  1. VIDAZA [Suspect]
     Indication: MDS
     Dosage: 140 Milligram
     Route: 058
     Dates: start: 20120403
  2. VIDAZA [Suspect]
     Route: 058
     Dates: start: 20120627, end: 20120705
  3. REVLIMID [Suspect]
     Indication: MDS
     Dosage: 10 Milligram
     Route: 048
     Dates: start: 20120403, end: 20120412
  4. REVLIMID [Suspect]
     Route: 048
     Dates: end: 20120502

REACTIONS (1)
  - Hepatitis E [Recovered/Resolved]
